FAERS Safety Report 11891205 (Version 1)
Quarter: 2016Q1

REPORT INFORMATION
  Report Type: Spontaneous
  Country: US (occurrence: None)
  Receive Date: 20160105
  Receipt Date: 20160105
  Transmission Date: 20160526
  Serious: No
  Sender: FDA-Public Use
  Company Number: None

PATIENT

DRUGS (1)
  1. MEGESTROL ACETATE MEGESTEROL ACETATE [Suspect]
     Active Substance: MEGESTROL ACETATE

REACTIONS (2)
  - Prescribed underdose [None]
  - Drug prescribing error [None]
